FAERS Safety Report 5762407-X (Version None)
Quarter: 2008Q2

REPORT INFORMATION
  Report Type: 
  Country: None (occurrence: None)
  Receive Date: 20080609
  Receipt Date: 20080529
  Transmission Date: 20081010
  Serious: Yes (Life-Threatening, Hospitalization)
  Sender: FDA-Public Use
  Company Number: FR-AMGEN-UK283025

PATIENT
  Sex: Female

DRUGS (15)
  1. KINERET [Suspect]
     Indication: RHEUMATOID ARTHRITIS
     Route: 058
     Dates: start: 20051001, end: 20051201
  2. ENBREL [Suspect]
     Indication: RHEUMATOID ARTHRITIS
     Route: 058
     Dates: start: 20031201, end: 20040601
  3. METHOTREXATE [Suspect]
     Route: 048
     Dates: start: 19971101, end: 20050601
  4. ARAVA [Suspect]
     Route: 048
     Dates: start: 20040901, end: 20050601
  5. CORTANCYL [Suspect]
     Route: 048
     Dates: start: 20051101
  6. HUMIRA [Suspect]
     Route: 058
     Dates: start: 20060901, end: 20070501
  7. PANTOPRAZOLE SODIUM [Concomitant]
     Route: 048
  8. SECTRAL [Concomitant]
     Route: 048
  9. RIVOTRIL [Concomitant]
  10. TRIATEC [Concomitant]
     Route: 048
  11. CALCIDOSE [Concomitant]
     Route: 048
  12. TANGANIL [Concomitant]
     Route: 048
  13. DAFALGAN [Concomitant]
     Route: 048
  14. LANTUS [Concomitant]
  15. NOVORAPID [Concomitant]

REACTIONS (2)
  - DRUG INEFFECTIVE [None]
  - RECTAL NEOPLASM [None]
